FAERS Safety Report 13354615 (Version 1)
Quarter: 2017Q1

REPORT INFORMATION
  Report Type: Spontaneous
  Country: US (occurrence: US)
  Receive Date: 20170321
  Receipt Date: 20170321
  Transmission Date: 20170429
  Serious: No
  Sender: FDA-Public Use
  Company Number: US-GLAXOSMITHKLINE-US2017038006

PATIENT
  Sex: Male

DRUGS (1)
  1. NUCALA [Suspect]
     Active Substance: MEPOLIZUMAB
     Indication: ASTHMA
     Dosage: ONCE MONTHLY
     Route: 058
     Dates: start: 201702

REACTIONS (5)
  - Vomiting [Unknown]
  - Pyrexia [Unknown]
  - Pain [Unknown]
  - Influenza [Unknown]
  - Diarrhoea [Unknown]
